FAERS Safety Report 8738141 (Version 2)
Quarter: 2013Q4

REPORT INFORMATION
  Report Type: Spontaneous
  Country: US (occurrence: US)
  Receive Date: 20120823
  Receipt Date: 20131101
  Transmission Date: 20140711
  Serious: No
  Sender: FDA-Public Use
  Company Number: US-009507513-1207USA012468

PATIENT
  Age: 19 Year
  Sex: Male

DRUGS (1)
  1. NASONEX [Suspect]
     Indication: SINUS CONGESTION
     Dosage: 50 MICROGRAM, UNK
     Route: 045
     Dates: start: 20120714, end: 201207

REACTIONS (4)
  - Rash [Recovering/Resolving]
  - Pain [Recovering/Resolving]
  - Skin irritation [Recovering/Resolving]
  - Skin wrinkling [Recovering/Resolving]
